FAERS Safety Report 25776356 (Version 1)
Quarter: 2025Q3

REPORT INFORMATION
  Report Type: Spontaneous
  Country: US (occurrence: US)
  Receive Date: 20250909
  Receipt Date: 20250909
  Transmission Date: 20251020
  Serious: No
  Sender: DOMPE FARMACEUTICI
  Company Number: US-FARMAPROD-202502-0595

PATIENT
  Sex: Male

DRUGS (29)
  1. OXERVATE [Suspect]
     Active Substance: CENEGERMIN-BKBJ
     Indication: Neurotrophic keratopathy
     Route: 047
     Dates: start: 20200309
  2. OXERVATE [Suspect]
     Active Substance: CENEGERMIN-BKBJ
     Route: 047
     Dates: start: 20250210
  3. ZINC [Concomitant]
     Active Substance: ZINC
  4. VITAMIN E [Concomitant]
     Active Substance: .ALPHA.-TOCOPHEROL
  5. PYRIDOXINE [Concomitant]
     Active Substance: PYRIDOXINE
  6. THIAMINE HYDROCHLORIDE [Concomitant]
     Active Substance: THIAMINE HYDROCHLORIDE
  7. TAMSULOSIN HYDROCHLORIDE [Concomitant]
     Active Substance: TAMSULOSIN HYDROCHLORIDE
  8. HERBALS\SAW PALMETTO [Concomitant]
     Active Substance: HERBALS\SAW PALMETTO
  9. RAMIPRIL [Concomitant]
     Active Substance: RAMIPRIL
  10. SOOTHE HYDRATION [Concomitant]
     Active Substance: POVIDONE
  11. OFLOXACIN [Concomitant]
     Active Substance: OFLOXACIN
  12. MAGNESIUM [Concomitant]
     Active Substance: MAGNESIUM
  13. LUTEIN-ZEAXANTHIN [Concomitant]
  14. FLAXSEED [Concomitant]
     Active Substance: FLAX SEED
  15. HUMULIN 70-30 [Concomitant]
  16. GENTEAL TEARS SEVERE [Concomitant]
     Active Substance: HYPROMELLOSE 2910 (4000 MPA.S)
  17. GREEN TEA PLUS HOODIA [Concomitant]
  18. HERBALS\VITIS VINIFERA SEED [Concomitant]
     Active Substance: HERBALS\VITIS VINIFERA SEED
  19. GLIPIZIDE [Concomitant]
     Active Substance: GLIPIZIDE
  20. GINKGO [Concomitant]
     Active Substance: GINKGO
  21. GARLIC [Concomitant]
     Active Substance: GARLIC
  22. ECHINACEA [Concomitant]
     Active Substance: ECHINACEA, UNSPECIFIED
  23. CINNAMON [Concomitant]
     Active Substance: CINNAMON
  24. VITAMIN C [Concomitant]
     Active Substance: ASCORBIC ACID
  25. ALPRAZOLAM [Concomitant]
     Active Substance: ALPRAZOLAM
  26. ALFALFA [Concomitant]
     Active Substance: ALFALFA
  27. VITAMIN D2 [Concomitant]
     Active Substance: ERGOCALCIFEROL
  28. BRIMONIDINE TARTRATE [Concomitant]
     Active Substance: BRIMONIDINE TARTRATE
  29. BACLOFEN [Concomitant]
     Active Substance: BACLOFEN

REACTIONS (3)
  - Eye pain [Unknown]
  - Eye irritation [Unknown]
  - Therapy interrupted [Unknown]
